FAERS Safety Report 19011559 (Version 1)
Quarter: 2021Q1

REPORT INFORMATION
  Report Type: Spontaneous
  Country: US (occurrence: US)
  Receive Date: 20210316
  Receipt Date: 20210316
  Transmission Date: 20210420
  Serious: Yes (Hospitalization)
  Sender: FDA-Public Use
  Company Number: None

PATIENT
  Age: 74 Year
  Sex: Male
  Weight: 97.2 kg

DRUGS (14)
  1. TRESIBA 57 UNITS [Concomitant]
  2. LISINOPRIL/HCTZ 20/25 [Concomitant]
     Active Substance: HYDROCHLOROTHIAZIDE\LISINOPRIL
  3. VITAMIN D3 ? 2000 UNIT [Concomitant]
  4. CINNAMON 1000 MG [Concomitant]
  5. FISH OIL 1000 MG [Concomitant]
  6. GLIPIZIDE 10 MG [Concomitant]
     Active Substance: GLIPIZIDE
  7. CRESTOR [Concomitant]
     Active Substance: ROSUVASTATIN CALCIUM
  8. CO Q 10 400 MG [Concomitant]
  9. VITAMIN C 1000 MG [Concomitant]
  10. VITAMIN E 400 UNIT [Concomitant]
  11. MVI TABLET [Concomitant]
  12. METFORMIN [Concomitant]
     Active Substance: METFORMIN HYDROCHLORIDE
  13. BAMLANIVIMAB. [Suspect]
     Active Substance: BAMLANIVIMAB
     Indication: COVID-19
     Dosage: ?          OTHER FREQUENCY:ONE TIME INFUSION;?
     Route: 042
     Dates: start: 20210311, end: 20210311
  14. ASPIRIN 81 MG [Concomitant]
     Active Substance: ASPIRIN

REACTIONS (11)
  - Acute myocardial infarction [None]
  - Asthenia [None]
  - Hypophagia [None]
  - Electrolyte imbalance [None]
  - Troponin increased [None]
  - Fatigue [None]
  - Urine output decreased [None]
  - Dehydration [None]
  - Electrocardiogram T wave inversion [None]
  - Hypoxia [None]
  - Cough [None]

NARRATIVE: CASE EVENT DATE: 20210312
